FAERS Safety Report 17096992 (Version 1)
Quarter: 2019Q4

REPORT INFORMATION
  Report Type: Spontaneous
  Country: US (occurrence: US)
  Receive Date: 20191102
  Receipt Date: 20191102
  Transmission Date: 20200122
  Serious: Yes (Hospitalization)
  Sender: FDA-Public Use
  Company Number: None

PATIENT
  Age: 54 Year
  Sex: Male
  Weight: 66.5 kg

DRUGS (1)
  1. CISPLATIN. [Suspect]
     Active Substance: CISPLATIN
     Dates: end: 20191008

REACTIONS (5)
  - Cough [None]
  - Chills [None]
  - Productive cough [None]
  - Urinary tract infection [None]
  - Pyrexia [None]

NARRATIVE: CASE EVENT DATE: 20191024
